FAERS Safety Report 14990248 (Version 1)
Quarter: 2018Q2

REPORT INFORMATION
  Report Type: Spontaneous
  Country: US (occurrence: US)
  Receive Date: 20180608
  Receipt Date: 20180608
  Transmission Date: 20180711
  Serious: No
  Sender: FDA-Public Use
  Company Number: US-ROCHE-2056946

PATIENT
  Sex: Female

DRUGS (14)
  1. TIZANIDINE. [Concomitant]
     Active Substance: TIZANIDINE
     Route: 065
  2. HYDROCHLOROTHIAZID [Concomitant]
     Active Substance: HYDROCHLOROTHIAZIDE
     Route: 065
  3. POTASSIUM CLORAZEPATE [Concomitant]
     Active Substance: CLORAZEPATE DIPOTASSIUM
     Route: 065
  4. HYDROCODONE CP [Concomitant]
     Active Substance: CHLORPHENIRAMINE MALEATE\HYDROCODONE\PHENYLEPHRINE
     Dosage: 10-325 MG
     Route: 065
  5. AMMONIUM LACTATE. [Concomitant]
     Active Substance: AMMONIUM LACTATE
  6. LISINOPRIL. [Concomitant]
     Active Substance: LISINOPRIL
  7. ACTEMRA [Suspect]
     Active Substance: TOCILIZUMAB
     Indication: DERMATITIS ATOPIC
     Route: 058
  8. CLONAZEPAM. [Concomitant]
     Active Substance: CLONAZEPAM
     Route: 065
  9. GABAPENTIN. [Concomitant]
     Active Substance: GABAPENTIN
  10. OMEPRAZOLE. [Concomitant]
     Active Substance: OMEPRAZOLE
     Route: 065
  11. TRAZODONE HYDROCHLORIDE. [Concomitant]
     Active Substance: TRAZODONE HYDROCHLORIDE
  12. TRAZODON [Concomitant]
     Active Substance: TRAZODONE HYDROCHLORIDE
     Route: 065
  13. ALBUTEROL SULFATE. [Concomitant]
     Active Substance: ALBUTEROL SULFATE
  14. FLUTICASONE. [Concomitant]
     Active Substance: FLUTICASONE
     Route: 065

REACTIONS (3)
  - Pain [Not Recovered/Not Resolved]
  - Intentional product use issue [Unknown]
  - Off label use [Unknown]
